FAERS Safety Report 4971043-4 (Version None)
Quarter: 2006Q2

REPORT INFORMATION
  Report Type: 
  Country: None (occurrence: None)
  Receive Date: 20060412
  Receipt Date: 20060403
  Transmission Date: 20061013
  Serious: Yes (Hospitalization, Other)
  Sender: FDA-Public Use
  Company Number: US-JNJFOC-20040908135

PATIENT
  Sex: Male
  Weight: 115.67 kg

DRUGS (10)
  1. RISPERDAL [Suspect]
     Route: 048
  2. RISPERDAL [Suspect]
     Route: 048
  3. RISPERDAL [Suspect]
     Route: 048
  4. RISPERDAL [Suspect]
     Route: 048
  5. RISPERDAL [Suspect]
     Indication: MENTAL DISORDER
     Route: 048
  6. CLONIDINE [Concomitant]
     Indication: HYPERTENSION
     Route: 065
  7. DILTIAZEM HCL [Concomitant]
     Indication: HYPERTENSION
     Route: 065
  8. AMARYL [Concomitant]
     Indication: DIABETES MELLITUS
     Route: 065
  9. ZYRTEC [Concomitant]
     Dosage: AS NEEDED
     Route: 065
  10. ALLEGRA [Concomitant]
     Route: 065

REACTIONS (23)
  - APPENDICITIS [None]
  - BLOOD ALBUMIN DECREASED [None]
  - BLOOD PHOSPHORUS DECREASED [None]
  - BLOOD SODIUM DECREASED [None]
  - CONJUNCTIVITIS [None]
  - COUGH [None]
  - DIABETES MELLITUS [None]
  - GASTRIC DISORDER [None]
  - GASTROENTERITIS [None]
  - GASTROINTESTINAL DISORDER [None]
  - HAEMATOCRIT DECREASED [None]
  - HAEMATURIA [None]
  - HAEMOGLOBIN DECREASED [None]
  - HYPERSENSITIVITY [None]
  - LYMPHOCYTE PERCENTAGE DECREASED [None]
  - MONOCYTE COUNT INCREASED [None]
  - NEPHROLITHIASIS [None]
  - PAIN [None]
  - PANCREATITIS [None]
  - PHARYNGITIS [None]
  - RED BLOOD CELL COUNT DECREASED [None]
  - SINUS TACHYCARDIA [None]
  - URINARY TRACT INFECTION [None]
